FAERS Safety Report 15017088 (Version 1)
Quarter: 2018Q2

REPORT INFORMATION
  Report Type: Spontaneous
  Country: ZA (occurrence: ZA)
  Receive Date: 20180615
  Receipt Date: 20180615
  Transmission Date: 20180711
  Serious: Yes (Other)
  Sender: FDA-Public Use
  Company Number: ZA-BAYER-2018-109813

PATIENT
  Age: 33 Year
  Sex: Female

DRUGS (1)
  1. MIRENA [Suspect]
     Active Substance: LEVONORGESTREL
     Dosage: 20 MCG/24HR, CONT
     Route: 015
     Dates: start: 201605, end: 201806

REACTIONS (5)
  - Device expulsion [None]
  - Genital haemorrhage [None]
  - Amenorrhoea [Recovered/Resolved]
  - Coital bleeding [None]
  - Uterine polyp [None]

NARRATIVE: CASE EVENT DATE: 20180606
